FAERS Safety Report 21292658 (Version 2)
Quarter: 2022Q4

REPORT INFORMATION
  Report Type: Report from Study
  Country: DE (occurrence: DE)
  Receive Date: 20220905
  Receipt Date: 20221013
  Transmission Date: 20230112
  Serious: Yes (Hospitalization)
  Sender: FDA-Public Use
  Company Number: DE-PFIZER INC-2021718705

PATIENT
  Age: 70 Year
  Sex: Female

DRUGS (23)
  1. METHOTREXATE SODIUM [Suspect]
     Active Substance: METHOTREXATE SODIUM
     Indication: Rheumatoid arthritis
     Dosage: 15 MG, WEEKLY , UNIT DOSE : 15 MG
     Route: 065
  2. METHOTREXATE SODIUM [Suspect]
     Active Substance: METHOTREXATE SODIUM
     Dosage: 10 MILLIGRAM
     Dates: start: 20181219
  3. METHOTREXATE SODIUM [Suspect]
     Active Substance: METHOTREXATE SODIUM
     Dosage: 15 MG
     Dates: start: 20170918
  4. METHOTREXATE SODIUM [Suspect]
     Active Substance: METHOTREXATE SODIUM
     Dosage: 10 MG
     Dates: start: 20200219
  5. METHOTREXATE SODIUM [Suspect]
     Active Substance: METHOTREXATE SODIUM
     Dosage: 15 MG
     Dates: start: 20210222
  6. METHOTREXATE SODIUM [Suspect]
     Active Substance: METHOTREXATE SODIUM
     Dosage: 7.5 MG
     Dates: start: 20160727
  7. METHOTREXATE SODIUM [Suspect]
     Active Substance: METHOTREXATE SODIUM
     Dosage: 15 MG
     Dates: start: 20200630
  8. METHOTREXATE SODIUM [Suspect]
     Active Substance: METHOTREXATE SODIUM
     Dosage: 10 MG
     Dates: start: 20190626
  9. METHOTREXATE SODIUM [Suspect]
     Active Substance: METHOTREXATE SODIUM
     Dosage: 15 MG
     Dates: start: 20170224
  10. METHOTREXATE SODIUM [Suspect]
     Active Substance: METHOTREXATE SODIUM
     Dosage: 15 MG
     Dates: start: 20171211
  11. METHOTREXATE SODIUM [Suspect]
     Active Substance: METHOTREXATE SODIUM
     Dosage: 15 MG
     Dates: start: 20210802
  12. METHOTREXATE SODIUM [Suspect]
     Active Substance: METHOTREXATE SODIUM
     Dosage: 10 MG
     Dates: start: 20180904
  13. METHOTREXATE SODIUM [Suspect]
     Active Substance: METHOTREXATE SODIUM
     Dosage: 15 MG
     Dates: start: 20161101
  14. KEVZARA [Suspect]
     Active Substance: SARILUMAB
     Indication: Rheumatoid arthritis
     Dosage: 200 MG, CYCLIC(EVERY 14 DAYS) , UNIT DOSE : 200 MG , THERAPY END DATE : NASK
     Route: 065
     Dates: start: 20201214
  15. KEVZARA [Suspect]
     Active Substance: SARILUMAB
     Dosage: 200 MG, CYCLIC(EVERY 14 DAYS) , UNIT DOSE : 200 MG , THERAPY END DATE : NASK
     Route: 065
     Dates: start: 20200630, end: 20200730
  16. KEVZARA [Suspect]
     Active Substance: SARILUMAB
     Dosage: 200 MILLIGRAM
     Dates: start: 202108
  17. KEVZARA [Suspect]
     Active Substance: SARILUMAB
     Dosage: 200 MG
     Dates: start: 202006, end: 202007
  18. KEVZARA [Suspect]
     Active Substance: SARILUMAB
     Dosage: 200 MILLIGRAM
     Dates: start: 202012
  19. XELJANZ [Suspect]
     Active Substance: TOFACITINIB CITRATE
     Indication: Rheumatoid arthritis
     Dosage: 10 MILLIGRAM
     Route: 065
     Dates: start: 202002, end: 202003
  20. TRUXIMA [Concomitant]
     Active Substance: RITUXIMAB-ABBS
     Indication: Rheumatoid arthritis
     Dosage: 500 MG
     Dates: start: 201809
  21. TRUXIMA [Concomitant]
     Active Substance: RITUXIMAB-ABBS
     Dosage: 500 MILLIGRAM
     Dates: start: 201909
  22. TRUXIMA [Concomitant]
     Active Substance: RITUXIMAB-ABBS
     Dosage: 500 MILLIGRAM
     Dates: start: 201903
  23. ENBREL [Concomitant]
     Active Substance: ETANERCEPT
     Indication: Rheumatoid arthritis
     Dosage: 50 MILLIGRAM
     Dates: start: 201607, end: 201809

REACTIONS (1)
  - Post herpetic neuralgia [Unknown]

NARRATIVE: CASE EVENT DATE: 20201125
